FAERS Safety Report 5330906-0 (Version None)
Quarter: 2007Q2

REPORT INFORMATION
  Report Type: 
  Country: None (occurrence: None)
  Receive Date: 20070522
  Receipt Date: 20070509
  Transmission Date: 20071010
  Serious: Yes (Other)
  Sender: FDA-Public Use
  Company Number: AU-ELI_LILLY_AND_COMPANY-AU200705003235

PATIENT
  Age: 65 Year
  Sex: Female

DRUGS (3)
  1. ZYPREXA [Suspect]
     Dosage: 15 MG, DAILY (1/D)
  2. PAROXETINE [Interacting]
     Dosage: 60 MG, DAILY (1/D)
  3. PAROXETINE [Interacting]
     Dosage: 40 MG, DAILY (1/D)

REACTIONS (2)
  - DRUG INTERACTION [None]
  - ELECTROCARDIOGRAM QT CORRECTED INTERVAL PROLONGED [None]
